FAERS Safety Report 5827412-3 (Version None)
Quarter: 2008Q3

REPORT INFORMATION
  Report Type: 
  Country: None (occurrence: None)
  Receive Date: 20080730
  Receipt Date: 20080723
  Transmission Date: 20090109
  Serious: Yes (Other)
  Sender: FDA-Public Use
  Company Number: JP-BRISTOL-MYERS SQUIBB COMPANY-14277453

PATIENT
  Age: 58 Year
  Sex: Female

DRUGS (5)
  1. BARACLUDE [Suspect]
     Indication: HEPATITIS B
     Route: 048
     Dates: start: 20080327, end: 20080414
  2. PARIET [Concomitant]
     Route: 048
     Dates: start: 20080319
  3. LASIX [Concomitant]
     Route: 065
     Dates: start: 20080319
  4. ALDACTONE [Concomitant]
     Route: 048
     Dates: start: 20080319
  5. PORTOLAC [Concomitant]
     Route: 048
     Dates: start: 20080319

REACTIONS (3)
  - DRUG HYPERSENSITIVITY [None]
  - EOSINOPHIL COUNT INCREASED [None]
  - TOXIC SKIN ERUPTION [None]
